FAERS Safety Report 21411676 (Version 1)
Quarter: 2022Q4

REPORT INFORMATION
  Report Type: Spontaneous
  Country: US (occurrence: US)
  Receive Date: 20221005
  Receipt Date: 20221005
  Transmission Date: 20230112
  Serious: No
  Sender: FDA-Public Use
  Company Number: US-CHEMOCENTRYX, INC.-2022USCCXI0291

PATIENT

DRUGS (2)
  1. TAVNEOS [Suspect]
     Active Substance: AVACOPAN
     Indication: Product used for unknown indication
     Dosage: 6 CAPSULES PER DAY
     Route: 065
     Dates: end: 20220711
  2. TAVNEOS [Suspect]
     Active Substance: AVACOPAN
     Dosage: 10 MG, 1X/DAY
     Route: 065
     Dates: start: 20220712

REACTIONS (1)
  - Nausea [Unknown]
